FAERS Safety Report 9155455 (Version 1)
Quarter: 2013Q1

REPORT INFORMATION
  Report Type: Spontaneous
  Country: US (occurrence: US)
  Receive Date: 20130311
  Receipt Date: 20130311
  Transmission Date: 20140127
  Serious: Yes (Hospitalization)
  Sender: FDA-Public Use
  Company Number: US-PERRIGO-13US002179

PATIENT
  Sex: Male
  Weight: 72.56 kg

DRUGS (2)
  1. DIPHENHYDRAMINE HYDROCHLORIDE [Suspect]
     Indication: INTENTIONAL OVERDOSE
     Dosage: 68 TABLETS, ONCE
     Route: 048
     Dates: start: 20130228, end: 20130228
  2. ALCOHOL [Suspect]
     Indication: PRODUCT USED FOR UNKNOWN INDICATION
     Dosage: UNKNOWN
     Route: 048
     Dates: start: 20130228, end: 20130228

REACTIONS (7)
  - Intentional overdose [Unknown]
  - Feeling drunk [Recovered/Resolved]
  - Incoherent [Recovered/Resolved]
  - Suicidal ideation [Unknown]
  - Violence-related symptom [Unknown]
  - Labelled drug-drug interaction medication error [Recovered/Resolved]
  - Expired drug administered [Recovered/Resolved]
